FAERS Safety Report 15727552 (Version 1)
Quarter: 2018Q4

REPORT INFORMATION
  Report Type: Spontaneous
  Country: JP (occurrence: JP)
  Receive Date: 20181217
  Receipt Date: 20181217
  Transmission Date: 20190205
  Serious: Yes (Hospitalization)
  Sender: FDA-Public Use
  Company Number: JP-PFIZER INC-2018516869

PATIENT
  Age: 77 Year
  Sex: Male
  Weight: 46 kg

DRUGS (4)
  1. FOSTOIN [Suspect]
     Active Substance: FOSPHENYTOIN SODIUM
     Indication: STATUS EPILEPTICUS
     Dosage: 1125 MG, 1X/DAY
     Route: 041
     Dates: start: 20180104, end: 20180104
  2. SOLDEM 3AG [Concomitant]
     Indication: NUTRITIONAL SUPPLEMENTATION
     Dosage: 500 ML, 1X/DAY
     Route: 041
     Dates: start: 20180104
  3. GASTER [OMEPRAZOLE] [Concomitant]
     Indication: PROPHYLAXIS
     Dosage: 20 MG, 1X/DAY
     Route: 041
     Dates: start: 20180104
  4. UNASYNE [SULTAMICILLIN] [Concomitant]
     Indication: INFECTION PROPHYLAXIS
     Dosage: 3 G, 1X/DAY
     Route: 041
     Dates: start: 20180104

REACTIONS (1)
  - Respiratory arrest [Recovered/Resolved]

NARRATIVE: CASE EVENT DATE: 20180105
